FAERS Safety Report 8814731 (Version 1)
Quarter: 2012Q4

REPORT INFORMATION
  Report Type: 
  Country: CH (occurrence: CH)
  Receive Date: 20120928
  Receipt Date: 20120928
  Transmission Date: 20130627
  Serious: Yes (Other)
  Sender: FDA-Public Use
  Company Number: CH-PFIZER INC-2012238961

PATIENT
  Age: 71 Year
  Sex: Male

DRUGS (9)
  1. TRIATEC [Suspect]
     Indication: ESSENTIAL HYPERTENSION
     Dosage: UNK
     Route: 048
  2. PRAVASTATIN [Suspect]
     Indication: HYPERCHOLESTEROLAEMIA
     Dosage: UNK
     Route: 048
  3. GLUCOPHAGE [Suspect]
     Indication: DIABETES MELLITUS
     Dosage: UNK
     Route: 048
  4. ASPIRINE [Concomitant]
  5. ALDACTONE [Concomitant]
     Dosage: UNK
  6. DIAMICRON [Concomitant]
     Dosage: UNK
  7. DILATREND [Concomitant]
     Dosage: UNK
  8. CHOLECALCIFEROL [Concomitant]
  9. PANTOPRAZOLE [Concomitant]

REACTIONS (3)
  - Weight decreased [Unknown]
  - Ageusia [Unknown]
  - Decreased appetite [Unknown]
